FAERS Safety Report 5277324-1 (Version None)
Quarter: 2007Q1

REPORT INFORMATION
  Report Type: 
  Country: None (occurrence: None)
  Receive Date: 20070327
  Receipt Date: 20070321
  Transmission Date: 20070707
  Serious: Yes (Hospitalization)
  Sender: FDA-Public Use
  Company Number: US-MERCK-0703USA03757

PATIENT
  Age: 81 Year
  Sex: Female

DRUGS (4)
  1. JANUVIA [Suspect]
     Indication: DIABETES MELLITUS NON-INSULIN-DEPENDENT
     Route: 048
     Dates: start: 20070312, end: 20070301
  2. PRILOSEC [Concomitant]
     Route: 065
  3. PRINIVIL [Concomitant]
     Route: 065
  4. HYDRODIURIL [Concomitant]
     Route: 065

REACTIONS (2)
  - BLOOD GLUCOSE FLUCTUATION [None]
  - LABYRINTHITIS [None]
